FAERS Safety Report 26135047 (Version 1)
Quarter: 2025Q4

REPORT INFORMATION
  Report Type: Spontaneous
  Country: US (occurrence: None)
  Receive Date: 20251208
  Receipt Date: 20251208
  Transmission Date: 20260119
  Serious: Yes (Disabling)
  Sender: FDA-CTU
  Company Number: None

PATIENT
  Age: 54 Year
  Sex: Female
  Weight: 117 kg

DRUGS (8)
  1. EVENITY [Suspect]
     Active Substance: ROMOSOZUMAB-AQQG
     Indication: Osteoporosis
  2. CALCIUM [Concomitant]
     Active Substance: CALCIUM
  3. ALEVE [Concomitant]
     Active Substance: NAPROXEN SODIUM
  4. MOUNJARO [Concomitant]
     Active Substance: TIRZEPATIDE
  5. METOPROLOL [Concomitant]
     Active Substance: METOPROLOL
  6. LISINOPRIL [Concomitant]
     Active Substance: LISINOPRIL
  7. rosuvastatin 20 [Concomitant]
  8. SPIRONOLACTONE [Concomitant]
     Active Substance: SPIRONOLACTONE

REACTIONS (4)
  - Heart rate irregular [None]
  - Dyspnoea [None]
  - Fatigue [None]
  - Diastolic dysfunction [None]

NARRATIVE: CASE EVENT DATE: 20251101
